FAERS Safety Report 19198658 (Version 1)
Quarter: 2021Q2

REPORT INFORMATION
  Report Type: Spontaneous
  Country: US (occurrence: US)
  Receive Date: 20210430
  Receipt Date: 20210430
  Transmission Date: 20210717
  Serious: No
  Sender: FDA-Public Use
  Company Number: US-SA-2021SA142334

PATIENT
  Sex: Female

DRUGS (29)
  1. DUPIXENT [Suspect]
     Active Substance: DUPILUMAB
     Indication: PRURITUS
     Dosage: 300 MG, QOW
     Route: 058
  2. ANORO ELLIPTA [Concomitant]
     Active Substance: UMECLIDINIUM BROMIDE\VILANTEROL TRIFENATATE
  3. GABAPENTIN. [Concomitant]
     Active Substance: GABAPENTIN
  4. LORATADINE. [Concomitant]
     Active Substance: LORATADINE
  5. PREDNISONE. [Concomitant]
     Active Substance: PREDNISONE
  6. VITAMIN D3 [Concomitant]
     Active Substance: CHOLECALCIFEROL
  7. CLOBETASOL PROPIONATE. [Concomitant]
     Active Substance: CLOBETASOL PROPIONATE
  8. ALBUTEROL SULFATE. [Concomitant]
     Active Substance: ALBUTEROL SULFATE
  9. BIOTIN [Concomitant]
     Active Substance: BIOTIN
     Dosage: 5000
  10. CALCIUM 600 PLUS VITAMIN D3 [Concomitant]
  11. IRBESARTAN. [Concomitant]
     Active Substance: IRBESARTAN
  12. METOPROLOL SUCCINATE. [Concomitant]
     Active Substance: METOPROLOL SUCCINATE
  13. HYDRALAZINE HYDROCHLORIDE. [Concomitant]
     Active Substance: HYDRALAZINE HYDROCHLORIDE
  14. JANUVIA [Concomitant]
     Active Substance: SITAGLIPTIN PHOSPHATE
  15. MONTELUKAST SODIUM. [Concomitant]
     Active Substance: MONTELUKAST SODIUM
  16. IRON [Concomitant]
     Active Substance: IRON
  17. ELIQUIS [Concomitant]
     Active Substance: APIXABAN
  18. MYCOPHENOLATE MOFETIL. [Concomitant]
     Active Substance: MYCOPHENOLATE MOFETIL
  19. POTASSIUM CHLORIDE. [Concomitant]
     Active Substance: POTASSIUM CHLORIDE
  20. TRAZODONE HYDROCHLORIDE. [Concomitant]
     Active Substance: TRAZODONE HYDROCHLORIDE
  21. ELIDEL [Concomitant]
     Active Substance: PIMECROLIMUS
  22. FLONASE ALLERGY RELIEF [Concomitant]
     Active Substance: FLUTICASONE PROPIONATE
  23. HUMALOG [Concomitant]
     Active Substance: INSULIN LISPRO
  24. HYDROXYCHLOROQUINE SULFATE. [Concomitant]
     Active Substance: HYDROXYCHLOROQUINE SULFATE
  25. TRAMADOL HYDROCHLORIDE. [Concomitant]
     Active Substance: TRAMADOL HYDROCHLORIDE
  26. DOCUSATE SODIUM. [Concomitant]
     Active Substance: DOCUSATE SODIUM
  27. FAMOTIDINE. [Concomitant]
     Active Substance: FAMOTIDINE
  28. AMLODIPINE BESILATE [Concomitant]
     Active Substance: AMLODIPINE BESYLATE
  29. FUROSEMIDE. [Concomitant]
     Active Substance: FUROSEMIDE

REACTIONS (1)
  - Product use in unapproved indication [Unknown]
